FAERS Safety Report 19179847 (Version 1)
Quarter: 2021Q2

REPORT INFORMATION
  Report Type: Spontaneous
  Country: US (occurrence: US)
  Receive Date: 20210426
  Receipt Date: 20210426
  Transmission Date: 20210717
  Serious: Yes (Life-Threatening)
  Sender: FDA-Public Use
  Company Number: None

PATIENT
  Age: 4 Year
  Sex: Female
  Weight: 18.45 kg

DRUGS (1)
  1. BANANA BOAT NOS [Suspect]
     Active Substance: AVOBENZONE\HOMOSALATE\OCTINOXATE\OCTISALATE\OCTOCRYLENE\OXYBENZONE\TITANIUM DIOXIDE\ZINC OXIDE
     Dates: start: 20210424, end: 20210424

REACTIONS (5)
  - Product administration error [None]
  - Product caught fire [None]
  - Hyperaesthesia [None]
  - Feeling hot [None]
  - Thermal burn [None]

NARRATIVE: CASE EVENT DATE: 20210424
